FAERS Safety Report 7653426-7 (Version None)
Quarter: 2011Q3

REPORT INFORMATION
  Report Type: 
  Country: None (occurrence: None)
  Receive Date: 20110803
  Receipt Date: 20110725
  Transmission Date: 20111222
  Serious: Yes (Hospitalization, Other)
  Sender: FDA-Public Use
  Company Number: US-SHIRE-ALL1-2011-01637

PATIENT
  Sex: Female
  Weight: 58.957 kg

DRUGS (5)
  1. VITAMIN B COMPLEX CAP [Concomitant]
     Indication: SUPPLEMENTATION THERAPY
     Dosage: UNK MG, 1X/DAY:QD
     Route: 048
  2. FOLIC ACID [Concomitant]
     Indication: SUPPLEMENTATION THERAPY
     Dosage: UNK MG, 1X/DAY:QD
     Route: 048
  3. MULTI-VITAMINS [Concomitant]
     Indication: SUPPLEMENTATION THERAPY
     Dosage: UNK MG, 1X/DAY:QD
     Route: 048
  4. VITAMIN E                          /00110501/ [Concomitant]
     Indication: SUPPLEMENTATION THERAPY
     Dosage: UNK MG, 1X/DAY:QD
     Route: 048
  5. LIALDA [Suspect]
     Indication: CROHN'S DISEASE
     Dosage: 1.2 G, 2X/DAY:BID
     Route: 048
     Dates: start: 20100501

REACTIONS (9)
  - BLOOD GLUCOSE INCREASED [None]
  - DRUG DOSE OMISSION [None]
  - ALOPECIA [None]
  - RASH [None]
  - WEIGHT DECREASED [None]
  - MEDICATION RESIDUE [None]
  - DIARRHOEA [None]
  - OFF LABEL USE [None]
  - DEMENTIA [None]
